FAERS Safety Report 16968299 (Version 1)
Quarter: 2019Q4

REPORT INFORMATION
  Report Type: Spontaneous
  Country: US (occurrence: US)
  Receive Date: 20191028
  Receipt Date: 20191028
  Transmission Date: 20200122
  Serious: No
  Sender: FDA-Public Use
  Company Number: US-AMGEN INC.-USASP2019175290

PATIENT
  Age: 39 Year
  Sex: Female

DRUGS (1)
  1. AIMOVIG [Suspect]
     Active Substance: ERENUMAB-AOOE
     Indication: MIGRAINE PROPHYLAXIS
     Dosage: 70 MILLIGRAM
     Route: 065
     Dates: start: 201907

REACTIONS (5)
  - Incorrect dose administered [Unknown]
  - Administration site bruise [Recovered/Resolved]
  - Accidental exposure to product [Unknown]
  - Injection site pain [Not Recovered/Not Resolved]
  - Wrong technique in product usage process [Unknown]

NARRATIVE: CASE EVENT DATE: 2019
